FAERS Safety Report 13023349 (Version 1)
Quarter: 2016Q4

REPORT INFORMATION
  Report Type: Spontaneous
  Country: US (occurrence: US)
  Receive Date: 20161211
  Receipt Date: 20161211
  Transmission Date: 20170207
  Serious: Yes (Other)
  Sender: FDA-Public Use
  Company Number: None

PATIENT
  Age: 67 Year
  Sex: Male
  Weight: 103.5 kg

DRUGS (3)
  1. REXULTI [Suspect]
     Active Substance: BREXPIPRAZOLE
     Indication: INFECTION PROTOZOAL
     Dosage: ?          QUANTITY:2 MG;?
     Route: 048
     Dates: start: 20150915, end: 20160628
  2. VALSARTAN. [Concomitant]
     Active Substance: VALSARTAN
  3. OMPRAZOLE [Concomitant]
     Active Substance: OMEPRAZOLE

REACTIONS (6)
  - Headache [None]
  - Speech disorder [None]
  - Dizziness [None]
  - Weight increased [None]
  - Dystonia [None]
  - Dyskinesia [None]

NARRATIVE: CASE EVENT DATE: 20160405
